FAERS Safety Report 9403578 (Version 2)
Quarter: 2013Q3

REPORT INFORMATION
  Report Type: Spontaneous
  Country: US (occurrence: US)
  Receive Date: 20130717
  Receipt Date: 20130807
  Transmission Date: 20140515
  Serious: Yes (Hospitalization)
  Sender: FDA-Public Use
  Company Number: US-009507513-1307USA004779

PATIENT
  Age: 24 Year
  Sex: Male

DRUGS (8)
  1. REMERON [Suspect]
     Dosage: 15 MG, HS AT BED TIME
     Route: 048
  2. WELLBUTRIN [Concomitant]
     Dosage: UNK
  3. TYLENOL [Concomitant]
     Dosage: UNK
  4. TORADOL [Concomitant]
     Dosage: UNK
  5. PROTONIX [Concomitant]
     Dosage: UNK
  6. SENOKOT (SENNA) [Concomitant]
     Dosage: UNK
  7. ZOFRAN [Concomitant]
     Dosage: UNK
  8. MK-9384 [Concomitant]
     Dosage: UNK

REACTIONS (2)
  - Abdominal pain [Recovering/Resolving]
  - Benzodiazepine drug level [Unknown]
